FAERS Safety Report 10268619 (Version 1)
Quarter: 2014Q2

REPORT INFORMATION
  Report Type: Spontaneous
  Country: BR (occurrence: BR)
  Receive Date: 20140630
  Receipt Date: 20140630
  Transmission Date: 20141212
  Serious: Yes (Other)
  Sender: FDA-Public Use
  Company Number: BR-PFIZER INC-2014176141

PATIENT
  Age: 65 Year
  Sex: Female
  Weight: 72 kg

DRUGS (2)
  1. LIPITOR [Suspect]
     Indication: BLOOD CHOLESTEROL
     Dosage: 40 MG, DAILY
     Route: 048
     Dates: start: 20080930, end: 2012
  2. FRONTAL [Suspect]
     Indication: ANXIETY
     Dosage: 1 MG, DAILY
     Route: 048
     Dates: start: 19990930

REACTIONS (5)
  - Meniscus injury [Unknown]
  - Chondropathy [Unknown]
  - Arthralgia [Unknown]
  - Hepatic enzyme abnormal [Unknown]
  - Pain in extremity [Unknown]
